FAERS Safety Report 7768539-9 (Version None)
Quarter: 2011Q3

REPORT INFORMATION
  Report Type: 
  Country: None (occurrence: None)
  Receive Date: 20110922
  Receipt Date: 20110414
  Transmission Date: 20111222
  Serious: No
  Sender: FDA-Public Use
  Company Number: US-ASTRAZENECA-2011SE21464

PATIENT
  Age: 42 Year
  Sex: Male
  Weight: 63.5 kg

DRUGS (3)
  1. LITHIUM CARBONATE [Concomitant]
  2. COGENTIN [Concomitant]
  3. SEROQUEL [Suspect]
     Indication: BIPOLAR DISORDER
     Route: 048
     Dates: start: 19980101

REACTIONS (2)
  - IMPAIRED WORK ABILITY [None]
  - PARKINSON'S DISEASE [None]
